FAERS Safety Report 8084056-3 (Version None)
Quarter: 2012Q1

REPORT INFORMATION
  Report Type: 
  Country: None (occurrence: None)
  Receive Date: 20120128
  Receipt Date: 20110316
  Transmission Date: 20120608
  Serious: No
  Sender: FDA-Public Use
  Company Number: US-ABBOTT-11P-163-0703228-00

PATIENT
  Sex: Female
  Weight: 102.6 kg

DRUGS (27)
  1. HUMIRA [Suspect]
     Indication: CROHN'S DISEASE
     Route: 058
     Dates: start: 20101201, end: 20110101
  2. HUMIRA [Suspect]
     Indication: RHEUMATOID ARTHRITIS
  3. XANAX [Concomitant]
     Indication: ANXIETY
     Dosage: 1MG-TAKE 1/2 TAB IN AM/PM 1 AT BEDTIME
  4. VICODIN [Concomitant]
     Indication: PRODUCT USED FOR UNKNOWN INDICATION
     Dosage: 5/500 EVERY FOR HOURS AS NEEDED
  5. LOTEMAX [Concomitant]
     Indication: PRODUCT USED FOR UNKNOWN INDICATION
     Dosage: 1 DROP BOTH EYES DAILY
  6. PADADAY [Concomitant]
     Indication: PRODUCT USED FOR UNKNOWN INDICATION
     Dosage: 1 DROP BOTH EYES IN AM
  7. HUMIRA [Suspect]
     Indication: COLITIS ULCERATIVE
  8. ANAMANTLE [Concomitant]
     Indication: PRURITUS
     Route: 061
  9. PENZOLE [Concomitant]
     Indication: PRODUCT USED FOR UNKNOWN INDICATION
     Dosage: EYE DROPS
  10. RESTASIS [Concomitant]
     Indication: PRODUCT USED FOR UNKNOWN INDICATION
  11. NEBULIZER WITH ALBUTEROL TREATMENTS [Concomitant]
     Indication: PNEUMONIA
  12. FOLIC ACID [Concomitant]
     Indication: PRODUCT USED FOR UNKNOWN INDICATION
     Dosage: 1MG DAILY
  13. VITAMIN D [Concomitant]
     Indication: PRODUCT USED FOR UNKNOWN INDICATION
     Dosage: DAILY
  14. LASIX [Concomitant]
     Indication: PRODUCT USED FOR UNKNOWN INDICATION
     Dosage: 20MG DAILY
  15. SPIRIVA [Concomitant]
     Indication: ASTHMA
     Dosage: DAILY
  16. NEBULIZER WITH ALBUTEROL TREATMENTS [Concomitant]
     Indication: CHRONIC OBSTRUCTIVE PULMONARY DISEASE
  17. SINGULAIR [Concomitant]
     Indication: PRODUCT USED FOR UNKNOWN INDICATION
     Dosage: 10MG DAILY
  18. SYNTHROID [Concomitant]
     Indication: PRODUCT USED FOR UNKNOWN INDICATION
     Dosage: 1.37MCG DAILY
  19. LIALDA [Concomitant]
     Indication: PRODUCT USED FOR UNKNOWN INDICATION
     Dosage: 1.2GM-4TABS DAILY
  20. OMEPRAZOLE [Concomitant]
     Indication: PRODUCT USED FOR UNKNOWN INDICATION
     Dosage: 5/500 EVERY FOR HOURS PRN
  21. ENERGY FOR WOMEN [Concomitant]
     Indication: PRODUCT USED FOR UNKNOWN INDICATION
     Dosage: DAILY
  22. OXYGEN [Concomitant]
     Indication: PRODUCT USED FOR UNKNOWN INDICATION
  23. CLARITIN [Concomitant]
     Indication: ASTHMA
     Dosage: 10MG DAILY
  24. SYMBICORT [Concomitant]
     Indication: ASTHMA
  25. NEBULIZER WITH ALBUTEROL TREATMENTS [Concomitant]
     Indication: ASTHMA
     Dosage: DAILY
  26. GABAPENTIN [Concomitant]
     Indication: RHEUMATOID ARTHRITIS
     Dosage: 300 MG TWICE A DAY
  27. EFFEXOR [Concomitant]
     Indication: ANXIETY

REACTIONS (20)
  - SINUSITIS [None]
  - ABDOMINAL PAIN UPPER [None]
  - DECREASED APPETITE [None]
  - NASAL CONGESTION [None]
  - NEOPLASM [None]
  - HYPERHIDROSIS [None]
  - FATIGUE [None]
  - ABDOMINAL DISTENSION [None]
  - INFECTION [None]
  - WEIGHT ABNORMAL [None]
  - MASS [None]
  - WEIGHT DECREASED [None]
  - ORAL HERPES [None]
  - MALAISE [None]
  - PNEUMONIA [None]
  - PULMONARY CONGESTION [None]
  - WHEEZING [None]
  - BALANCE DISORDER [None]
  - FALL [None]
  - CONSTIPATION [None]
